FAERS Safety Report 7763651 (Version 3)
Quarter: 2014Q1

REPORT INFORMATION
  Report Type: Spontaneous
  Country: US (occurrence: US)
  Receive Date: 20110118
  Receipt Date: 20140116
  Transmission Date: 20141002
  Serious: Yes (Hospitalization, Other)
  Sender: FDA-Public Use
  Company Number: US-ROCHE-731074

PATIENT
  Age: 16 Year
  Sex: Male
  Weight: 54.4 kg

DRUGS (2)
  1. ACCUTANE [Suspect]
     Indication: ACNE
     Dosage: STRENGTH 20 MG/ 40 MG
     Route: 048
     Dates: start: 20040716, end: 20050211
  2. CLARITHROMYCIN [Concomitant]
     Route: 065

REACTIONS (14)
  - Crohn^s disease [Unknown]
  - Gastrointestinal injury [Unknown]
  - Intestinal obstruction [Unknown]
  - Depression [Unknown]
  - Inflammatory bowel disease [Unknown]
  - Intestinal ulcer [Unknown]
  - Colitis [Unknown]
  - Anal fistula [Unknown]
  - Oesophageal disorder [Unknown]
  - Large intestine polyp [Unknown]
  - Arthritis [Unknown]
  - Arthralgia [Unknown]
  - Dry skin [Unknown]
  - Chapped lips [Unknown]
